FAERS Safety Report 14696204 (Version 1)
Quarter: 2018Q1

REPORT INFORMATION
  Report Type: Spontaneous
  Country: US (occurrence: US)
  Receive Date: 20180329
  Receipt Date: 20180329
  Transmission Date: 20180509
  Serious: No
  Sender: FDA-Public Use
  Company Number: US-SA-2018SA042015

PATIENT
  Age: 73 Year
  Sex: Male

DRUGS (1)
  1. ALLEGRA-D [Suspect]
     Active Substance: FEXOFENADINE\PSEUDOEPHEDRINE
     Dosage: 60/120
     Route: 048
     Dates: end: 20180212

REACTIONS (1)
  - Dysuria [Not Recovered/Not Resolved]
